FAERS Safety Report 6967445-7 (Version None)
Quarter: 2010Q3

REPORT INFORMATION
  Report Type: 
  Country: None (occurrence: None)
  Receive Date: 20100907
  Receipt Date: 20100823
  Transmission Date: 20110219
  Serious: Yes (Other)
  Sender: FDA-Public Use
  Company Number: PHHY2010US56009

PATIENT
  Sex: Female

DRUGS (11)
  1. TEKTURNA [Suspect]
     Dosage: 1 DF, QD,  IN THE MORNING
  2. TEKTURNA [Suspect]
     Dosage: 2 DF, QD, IN THE MORNING
  3. METOPROLOL TARTRATE [Suspect]
  4. LISINOPRIL AND HYDROCHLOROTHIAZIDE [Suspect]
     Dosage: 25/40 MG
  5. NORVASC [Suspect]
     Dosage: 5 MG
  6. NORVASC [Suspect]
     Dosage: 10 MG
  7. ASPIRIN [Concomitant]
     Dosage: 325 MG,UNK
  8. METFORMIN HCL [Concomitant]
  9. FISH OIL [Concomitant]
  10. CALCIUM [Concomitant]
  11. SIMVASTATIN [Concomitant]
     Dosage: 20 MG

REACTIONS (4)
  - BLOOD PRESSURE INCREASED [None]
  - HERPES ZOSTER [None]
  - JOINT SWELLING [None]
  - RASH [None]
